FAERS Safety Report 19159707 (Version 1)
Quarter: 2021Q2

REPORT INFORMATION
  Report Type: Spontaneous
  Country: ES (occurrence: ES)
  Receive Date: 20210420
  Receipt Date: 20210420
  Transmission Date: 20210717
  Serious: Yes (Hospitalization)
  Sender: FDA-Public Use
  Company Number: ES-TEVA-2021-ES-1901782

PATIENT
  Age: 19 Year
  Sex: Female

DRUGS (4)
  1. AMOXICILINA (108A) [Suspect]
     Active Substance: AMOXICILLIN
     Dosage: 500 MG
     Route: 048
     Dates: start: 20210219, end: 20210301
  2. CLARITROMICINA (967A) [Suspect]
     Active Substance: CLARITHROMYCIN
     Dosage: 500 MG
     Route: 048
     Dates: start: 20210219, end: 20210301
  3. FLAGYL [Suspect]
     Active Substance: METRONIDAZOLE\METRONIDAZOLE HYDROCHLORIDE
     Dosage: 500 MG
     Route: 048
     Dates: start: 20210219, end: 20210301
  4. OMEPRAZOL (2141A) [Concomitant]
     Active Substance: OMEPRAZOLE
     Dosage: 20 MG
     Route: 048
     Dates: start: 20210219, end: 20210315

REACTIONS (1)
  - Pancytopenia [Recovered/Resolved]

NARRATIVE: CASE EVENT DATE: 20210312
